FAERS Safety Report 4396777-4 (Version None)
Quarter: 2004Q3

REPORT INFORMATION
  Report Type: 
  Country: None (occurrence: None)
  Receive Date: 20040713
  Receipt Date: 20040713
  Transmission Date: 20050211
  Serious: Yes (Hospitalization)
  Sender: FDA-Public Use
  Company Number: None

PATIENT
  Age: 85 Year
  Sex: Male
  Weight: 105.4 kg

DRUGS (3)
  1. ETODOLAC [Suspect]
     Indication: ANALGESIC THERAPY
     Dosage: 800MG, 400MG BID ORAL
     Route: 048
     Dates: start: 20031007, end: 20041018
  2. ETODOLAC [Suspect]
     Indication: ANTIINFLAMMATORY THERAPY
     Dosage: 800MG, 400MG BID ORAL
     Route: 048
     Dates: start: 20031007, end: 20041018
  3. ASPIRIN [Concomitant]

REACTIONS (1)
  - GASTROINTESTINAL HAEMORRHAGE [None]
